FAERS Safety Report 6548985-1 (Version None)
Quarter: 2010Q1

REPORT INFORMATION
  Report Type: 
  Country: None (occurrence: None)
  Receive Date: 20100125
  Receipt Date: 20100114
  Transmission Date: 20100710
  Serious: Yes (Other)
  Sender: FDA-Public Use
  Company Number: US-JNJFOC-20100105766

PATIENT
  Sex: Male
  Weight: 28.12 kg

DRUGS (4)
  1. CONCERTA [Suspect]
     Indication: ATTENTION DEFICIT/HYPERACTIVITY DISORDER
     Dosage: 38-72 MG
     Route: 048
  2. VYVANSE [Concomitant]
     Indication: ATTENTION DEFICIT/HYPERACTIVITY DISORDER
     Route: 048
  3. DAYTRANA [Concomitant]
     Indication: ATTENTION DEFICIT/HYPERACTIVITY DISORDER
     Route: 065
  4. TRAZODONE [Concomitant]
     Indication: SLEEP DISORDER
     Route: 065

REACTIONS (5)
  - DELAYED PUBERTY [None]
  - EPIPHYSES DELAYED FUSION [None]
  - GROWTH HORMONE DEFICIENCY [None]
  - INSOMNIA [None]
  - PRODUCT QUALITY ISSUE [None]
